FAERS Safety Report 8833349 (Version 1)
Quarter: 2012Q4

REPORT INFORMATION
  Report Type: 
  Country: US (occurrence: US)
  Receive Date: 20121010
  Receipt Date: 20121010
  Transmission Date: 20130627
  Serious: Yes (Other)
  Sender: FDA-Public Use
  Company Number: US-MYLANLABS-2012S1015997

PATIENT
  Age: 28 Year
  Sex: Female

DRUGS (2)
  1. LEVETIRACETAM EXTENDED-RELEASE TABLETS [Suspect]
     Indication: CONVULSION
     Route: 048
     Dates: start: 201207
  2. LAMICTAL [Concomitant]
     Indication: CONVULSION

REACTIONS (3)
  - Convulsion [Not Recovered/Not Resolved]
  - Drug ineffective [Not Recovered/Not Resolved]
  - Mood altered [Not Recovered/Not Resolved]
